FAERS Safety Report 11856801 (Version 1)
Quarter: 2015Q4

REPORT INFORMATION
  Report Type: Spontaneous
  Country: US (occurrence: None)
  Receive Date: 20151218
  Receipt Date: 20151218
  Transmission Date: 20160305
  Serious: Yes (Hospitalization)
  Sender: FDA-Public Use
  Company Number: US2015172437

PATIENT
  Age: 66 Year
  Sex: Female

DRUGS (3)
  1. CREST ANTI CAVITY REGULAR [Suspect]
     Active Substance: SODIUM FLUORIDE
     Indication: PRODUCT USED FOR UNKNOWN INDICATION
  2. BIOTENE FRESH MINT ORIGINAL (SODIUM FLUORIDE) [Suspect]
     Active Substance: SODIUM FLUORIDE
     Indication: PRODUCT USED FOR UNKNOWN INDICATION
  3. PREVIDENT [Suspect]
     Active Substance: SODIUM FLUORIDE
     Indication: PRODUCT USED FOR UNKNOWN INDICATION

REACTIONS (8)
  - Feeding disorder [None]
  - Hypersensitivity [None]
  - Nausea [None]
  - Abdominal discomfort [None]
  - Biliary tract disorder [None]
  - Oral discomfort [None]
  - Dysgeusia [None]
  - Weight decreased [None]
